FAERS Safety Report 18955355 (Version 1)
Quarter: 2021Q1

REPORT INFORMATION
  Report Type: Report from Study
  Country: US (occurrence: US)
  Receive Date: 20210301
  Receipt Date: 20210301
  Transmission Date: 20210420
  Serious: Yes (Other)
  Sender: FDA-Public Use
  Company Number: US-GLAXOSMITHKLINE-US2021GSK047008

PATIENT

DRUGS (1)
  1. CEFUROXIME SODIUM. [Suspect]
     Active Substance: CEFUROXIME SODIUM
     Indication: ENDOPHTHALMITIS
     Dosage: 1 ML
     Route: 042

REACTIONS (2)
  - Pathogen resistance [Unknown]
  - Treatment failure [Unknown]
